FAERS Safety Report 23163135 (Version 1)
Quarter: 2023Q4

REPORT INFORMATION
  Report Type: Spontaneous
  Country: KR (occurrence: KR)
  Receive Date: 20231109
  Receipt Date: 20231109
  Transmission Date: 20240110
  Serious: Yes (Hospitalization, Other)
  Sender: FDA-Public Use
  Company Number: KR-MankindUS-000105

PATIENT
  Age: 77 Year
  Sex: Female

DRUGS (12)
  1. BACLOFEN [Suspect]
     Active Substance: BACLOFEN
     Indication: Myalgia
     Dosage: TOTAL DOSE: 20 MG
  2. EPERISONE [Concomitant]
     Active Substance: EPERISONE
     Indication: Myalgia
     Dosage: TOTAL DOSE: 100 MG
  3. PREGABALIN [Concomitant]
     Active Substance: PREGABALIN
     Indication: Myalgia
  4. ACETAMINOPHEN [Concomitant]
     Active Substance: ACETAMINOPHEN
     Indication: Myalgia
  5. TRAMADOL [Concomitant]
     Active Substance: TRAMADOL\TRAMADOL HYDROCHLORIDE
     Indication: Myalgia
  6. ACECLOFENAC [Concomitant]
     Active Substance: ACECLOFENAC
     Indication: Myalgia
  7. GLIMEPIRIDE [Concomitant]
     Active Substance: GLIMEPIRIDE
  8. METFORMIN [Concomitant]
     Active Substance: METFORMIN HYDROCHLORIDE
  9. METHYLEPHEDRINE [Concomitant]
     Active Substance: METHYLEPHEDRINE
  10. NICARDIPINE [Concomitant]
     Active Substance: NICARDIPINE
  11. CHLORPHENIRAMINE [Concomitant]
     Active Substance: CHLORPHENIRAMINE
  12. EPHEDRINE [Concomitant]
     Active Substance: EPHEDRINE

REACTIONS (7)
  - Loss of consciousness [Recovered/Resolved]
  - Toxicity to various agents [Unknown]
  - Depressed level of consciousness [Recovered/Resolved]
  - Altered state of consciousness [Recovered/Resolved]
  - Nausea [Recovered/Resolved]
  - Vomiting [Recovered/Resolved]
  - Dizziness [Recovered/Resolved]
